FAERS Safety Report 6481350-4 (Version None)
Quarter: 2009Q4

REPORT INFORMATION
  Report Type: 
  Country: None (occurrence: None)
  Receive Date: 20091208
  Receipt Date: 20091202
  Transmission Date: 20100525
  Serious: Yes (Other)
  Sender: FDA-Public Use
  Company Number: B0611877A

PATIENT
  Sex: Female

DRUGS (2)
  1. TYKERB [Suspect]
     Indication: BREAST CANCER
     Dosage: 1250MG UNKNOWN
     Route: 048
     Dates: start: 20091020, end: 20091105
  2. XELODA [Suspect]
     Route: 048
     Dates: start: 20091020, end: 20091105

REACTIONS (1)
  - CARDIAC FAILURE [None]
